FAERS Safety Report 4992728-X (Version None)
Quarter: 2006Q1

REPORT INFORMATION
  Report Type: 
  Country: None (occurrence: None)
  Receive Date: 20060316
  Receipt Date: 20050927
  Transmission Date: 20060701
  Serious: Yes (Other)
  Sender: FDA-Public Use
  Company Number: 20871

PATIENT
  Age: 11 Year
  Sex: Male

DRUGS (1)
  1. PAMIDRONATE DISODIUM [Suspect]
     Dosage: UNKNOWN DOSE X Q 24 HR X 3D
     Dates: start: 20050918

REACTIONS (1)
  - ANAPHYLACTIC REACTION [None]
